FAERS Safety Report 6090271-0 (Version None)
Quarter: 2009Q1

REPORT INFORMATION
  Report Type: 
  Country: None (occurrence: None)
  Receive Date: 20090224
  Receipt Date: 20081218
  Transmission Date: 20090719
  Serious: No
  Sender: FDA-Public Use
  Company Number: US-ABBOTT-08P-163-0493568-00

PATIENT
  Sex: Female
  Weight: 71.278 kg

DRUGS (1)
  1. SIMCOR [Suspect]
     Indication: HYPERLIPIDAEMIA
     Dosage: 500MG/20MG DAILY
     Dates: start: 20080930, end: 20081219

REACTIONS (1)
  - CONSTIPATION [None]
